FAERS Safety Report 18508206 (Version 1)
Quarter: 2020Q4

REPORT INFORMATION
  Report Type: Other
  Country: CN (occurrence: CN)
  Receive Date: 20201116
  Receipt Date: 20201116
  Transmission Date: 20210114
  Serious: Yes (Other)
  Sender: FDA-Public Use
  Company Number: CN-GE HEALTHCARE LIFE SCIENCES-2020CSU005773

PATIENT

DRUGS (4)
  1. VISIPAQUE [Suspect]
     Active Substance: IODIXANOL
     Indication: THROMBOEMBOLECTOMY
  2. VISIPAQUE [Suspect]
     Active Substance: IODIXANOL
     Indication: CEREBRAL INFARCTION
  3. VISIPAQUE [Suspect]
     Active Substance: IODIXANOL
     Indication: ANGIOGRAM CEREBRAL
     Dosage: 16 GM (50 ML), SINGLE
     Route: 013
     Dates: start: 20201001, end: 20201001
  4. VISIPAQUE [Suspect]
     Active Substance: IODIXANOL
     Indication: CEREBRAL ISCHAEMIA

REACTIONS (2)
  - Subarachnoid haemorrhage [Recovering/Resolving]
  - Extravasation [Recovering/Resolving]

NARRATIVE: CASE EVENT DATE: 20201001
